FAERS Safety Report 12538050 (Version 3)
Quarter: 2016Q3

REPORT INFORMATION
  Report Type: Spontaneous
  Country: JP (occurrence: JP)
  Receive Date: 20160707
  Receipt Date: 20160801
  Transmission Date: 20161109
  Serious: Yes (Hospitalization)
  Sender: FDA-Public Use
  Company Number: JP-PFIZER INC-2016333202

PATIENT
  Age: 51 Year
  Sex: Male

DRUGS (5)
  1. METHYCOBAL [Concomitant]
     Active Substance: METHYLCOBALAMIN
     Indication: DYSGEUSIA
     Dosage: 1500 UG, 1X/DAY
     Route: 048
     Dates: start: 20160629
  2. PROMAC /01312301/ [Concomitant]
     Active Substance: POLAPREZINC
     Indication: DYSGEUSIA
     Dosage: 150 MG, 1X/DAY
     Route: 048
     Dates: start: 20160629, end: 20160722
  3. CELECOX [Suspect]
     Active Substance: CELECOXIB
     Indication: SPINAL COLUMN STENOSIS
     Dosage: 200 MG, 1X/DAY
     Route: 048
     Dates: start: 201605, end: 20160503
  4. PENICILIN G [Concomitant]
     Active Substance: PENICILLIN G
     Dosage: 24 MILLION IU, 1X/DAY
     Route: 042
     Dates: start: 20160629
  5. GENTACIN [Concomitant]
     Active Substance: GENTAMICIN SULFATE
     Dosage: 10 MG, 1X/DAY
     Route: 042
     Dates: start: 20160629

REACTIONS (3)
  - Off label use [Unknown]
  - Dysgeusia [Recovered/Resolved]
  - Cardiac valve disease [Recovered/Resolved]

NARRATIVE: CASE EVENT DATE: 201605
